FAERS Safety Report 12549157 (Version 1)
Quarter: 2016Q3

REPORT INFORMATION
  Report Type: Spontaneous
  Country: IT (occurrence: IT)
  Receive Date: 20160712
  Receipt Date: 20160712
  Transmission Date: 20161109
  Serious: Yes (Hospitalization)
  Sender: FDA-Public Use
  Company Number: IT-ASPEN PHARMA TRADING LIMITED US-AG-2016-007074

PATIENT
  Age: 50 Year
  Sex: Male

DRUGS (1)
  1. TIOGUANINE [Suspect]
     Active Substance: THIOGUANINE ANHYDROUS
     Indication: COLITIS ULCERATIVE
     Route: 065

REACTIONS (2)
  - Venoocclusive liver disease [Recovered/Resolved]
  - Off label use [Unknown]
